FAERS Safety Report 6512083-3 (Version None)
Quarter: 2009Q4

REPORT INFORMATION
  Report Type: 
  Country: None (occurrence: None)
  Receive Date: 20091222
  Receipt Date: 20090601
  Transmission Date: 20100525
  Serious: No
  Sender: FDA-Public Use
  Company Number: US-ASTRAZENECA-2009UW13837

PATIENT
  Age: 71 Year
  Sex: Male
  Weight: 99.8 kg

DRUGS (5)
  1. CRESTOR [Suspect]
     Route: 048
  2. METOPROLOL TARTRATE [Concomitant]
  3. INDOCIN [Concomitant]
  4. DIGOXIN [Concomitant]
  5. ASPIRIN [Concomitant]

REACTIONS (3)
  - BONE PAIN [None]
  - INSOMNIA [None]
  - MALAISE [None]
